FAERS Safety Report 22066777 (Version 1)
Quarter: 2023Q1

REPORT INFORMATION
  Report Type: Spontaneous
  Country: US (occurrence: US)
  Receive Date: 20230306
  Receipt Date: 20230306
  Transmission Date: 20230418
  Serious: Yes (Other)
  Sender: FDA-Public Use
  Company Number: US-FOUNDATIONCONSUMERHC-2023-US-003771

PATIENT
  Age: 75 Year
  Sex: Male
  Weight: 73.03 kg

DRUGS (8)
  1. FIBERCON [Suspect]
     Active Substance: CALCIUM POLYCARBOPHIL
     Indication: Functional gastrointestinal disorder
     Dosage: 2 CAPLETS DAILY AT 3 PM
     Route: 048
     Dates: start: 20190101
  2. XARELTO [Suspect]
     Active Substance: RIVAROXABAN
  3. DILTIAZEM [Concomitant]
     Active Substance: DILTIAZEM
  4. PANTOPRAZOLE [Concomitant]
     Active Substance: PANTOPRAZOLE
  5. PRAVASTATIN [Concomitant]
     Active Substance: PRAVASTATIN
  6. VALSARTAN [Concomitant]
     Active Substance: VALSARTAN
  7. EZETIMIBE [Concomitant]
     Active Substance: EZETIMIBE
  8. men^s multivitamins [Concomitant]

REACTIONS (6)
  - Nephrolithiasis [Recovered/Resolved]
  - Blood urine present [Recovered/Resolved]
  - Anaemia [Not Recovered/Not Resolved]
  - Asthenia [Recovered/Resolved]
  - Off label use [Not Recovered/Not Resolved]
  - Product use issue [Not Recovered/Not Resolved]

NARRATIVE: CASE EVENT DATE: 20190108
